FAERS Safety Report 6228493-8 (Version None)
Quarter: 2009Q2

REPORT INFORMATION
  Report Type: 
  Country: None (occurrence: None)
  Receive Date: 20090612
  Receipt Date: 20090605
  Transmission Date: 20091009
  Serious: Yes (Other)
  Sender: FDA-Public Use
  Company Number: US-ELI_LILLY_AND_COMPANY-US200906001578

PATIENT
  Sex: Male

DRUGS (7)
  1. FORTEO [Suspect]
     Dates: start: 20080101
  2. LUPRON [Concomitant]
     Dosage: EVERY THREE MONTHS FOR TWO YEARS
     Dates: start: 20091119
  3. FOSAMAX [Concomitant]
  4. LIPITOR [Concomitant]
     Dosage: 10 MG, UNK
  5. PRILOSEC [Concomitant]
     Indication: ABDOMINAL DISCOMFORT
  6. CALCIUM                                 /N/A/ [Concomitant]
  7. VITAMIN D [Concomitant]

REACTIONS (4)
  - BLOOD CALCIUM INCREASED [None]
  - BLOOD PARATHYROID HORMONE DECREASED [None]
  - DRUG INTERACTION [None]
  - PROSTATE CANCER RECURRENT [None]
